FAERS Safety Report 7801257-7 (Version None)
Quarter: 2011Q4

REPORT INFORMATION
  Report Type: 
  Country: None (occurrence: None)
  Receive Date: 20111007
  Receipt Date: 20111005
  Transmission Date: 20120403
  Serious: No
  Sender: FDA-Public Use
  Company Number: US-BIOGENIDEC-2011BI038223

PATIENT
  Age: 46 Year
  Sex: Female

DRUGS (1)
  1. TYSABRI [Suspect]
     Indication: MULTIPLE SCLEROSIS
     Route: 042
     Dates: start: 20070312

REACTIONS (6)
  - FEELING HOT [None]
  - BALANCE DISORDER [None]
  - PAIN [None]
  - HYPERHIDROSIS [None]
  - ASTHENIA [None]
  - MUSCULAR WEAKNESS [None]
